FAERS Safety Report 16439858 (Version 1)
Quarter: 2019Q3

REPORT INFORMATION
  Report Type: Spontaneous
  Country: US (occurrence: US)
  Receive Date: 20190615
  Receipt Date: 20190615
  Transmission Date: 20191004
  Serious: Yes (Other)
  Sender: FDA-Public Use
  Company Number: None

PATIENT
  Age: 6 Year
  Sex: Female
  Weight: 23.85 kg

DRUGS (2)
  1. SINGULAIR [Suspect]
     Active Substance: MONTELUKAST SODIUM
     Indication: ASTHMA
     Dates: start: 20180301, end: 20190201
  2. SALBUTOMAL [Concomitant]

REACTIONS (2)
  - Anger [None]
  - Aggression [None]

NARRATIVE: CASE EVENT DATE: 20190108
